APPROVED DRUG PRODUCT: GLYXAMBI
Active Ingredient: EMPAGLIFLOZIN; LINAGLIPTIN
Strength: 10MG;5MG
Dosage Form/Route: TABLET;ORAL
Application: N206073 | Product #001
Applicant: BOEHRINGER INGELHEIM
Approved: Jan 30, 2015 | RLD: Yes | RS: No | Type: RX

PATENTS:
Patent 8551957 | Expires: Oct 14, 2029
Patent 10258637 | Expires: Apr 3, 2034
Patent 9949998 | Expires: Jun 11, 2034
Patent 8673927 | Expires: May 4, 2027
Patent 12433906 | Expires: Apr 3, 2034
Patent 12433906 | Expires: Apr 3, 2034
Patent 12433906 | Expires: Apr 3, 2034
Patent 12433906 | Expires: Apr 3, 2034
Patent 12433906 | Expires: Apr 3, 2034
Patent 12364700 | Expires: Jun 8, 2037
Patent 11090323 | Expires: Apr 3, 2034
Patent 11833166 | Expires: Apr 3, 2034
Patent 11833166 | Expires: Apr 3, 2034
Patent 12115179 | Expires: Feb 11, 2030
Patent 8883805 | Expires: Nov 26, 2025
Patent 7713938 | Expires: Apr 15, 2027
Patent 11033552 | Expires: May 4, 2027
Patent 7579449 | Expires: Aug 1, 2028
Patent 12178819 | Expires: May 4, 2027
Patent 8673927*PED | Expires: Nov 4, 2027
Patent 7579449*PED | Expires: Feb 1, 2029
Patent 8551957*PED | Expires: Apr 14, 2030
Patent 8883805*PED | Expires: May 26, 2026
Patent 7713938*PED | Expires: Oct 15, 2027
Patent 10258637*PED | Expires: Oct 3, 2034
Patent 12115179*PED | Expires: Aug 11, 2030
Patent 12433906*PED | Expires: Oct 3, 2034
Patent 11833166*PED | Expires: Oct 3, 2034
Patent 12364700*PED | Expires: Dec 8, 2037
Patent 11090323*PED | Expires: Oct 3, 2034
Patent 11033552*PED | Expires: Nov 4, 2027
Patent 9173859 | Expires: May 4, 2027